FAERS Safety Report 4371069-8 (Version None)
Quarter: 2004Q2

REPORT INFORMATION
  Report Type: 
  Country: None (occurrence: None)
  Receive Date: 20040601
  Receipt Date: 20040518
  Transmission Date: 20050107
  Serious: Yes (Hospitalization)
  Sender: FDA-Public Use
  Company Number: 2004033669

PATIENT
  Age: 59 Year
  Sex: Male

DRUGS (13)
  1. DOXAZOSIN (DOXAZOSIN) [Suspect]
     Indication: HYPERTENSION
     Dosage: 4 MG (2 MG, 2 IN 1 D), ORAL
     Route: 048
     Dates: end: 20040322
  2. NORVASC [Suspect]
     Indication: HYPERTENSION
     Dosage: 10 MG (5 MG, 2 IN 1 D), ORAL
     Route: 048
     Dates: end: 20040317
  3. MEXILETINE HYDROCHLORIDE (MEXILETINE HYDROCHLORIDE) [Suspect]
     Indication: ILL-DEFINED DISORDER
     Dosage: 150 MG (150 MG, 1 IN 1 D), ORAL
     Route: 048
     Dates: start: 20031119, end: 20040317
  4. CANDESARTAN CILEXETIN (CANDESARTAN CILEXETIL) [Suspect]
     Indication: ILL-DEFINED DISORDER
     Dosage: 8 MG (8 MG, 1 IN 1 D), ORAL
     Route: 048
     Dates: start: 20031119, end: 20040317
  5. NIFEDIPINE [Concomitant]
  6. ACETYLSALICYLIC ACID SRT [Concomitant]
  7. FUROSEMIDE [Concomitant]
  8. DIPYRIDAMOLE [Concomitant]
  9. MARZULENE S (LEVOGLUTAMIDE, SODIUM GUALENATE0 [Concomitant]
  10. BROTIZOLAM (BROTIZOLAM) [Concomitant]
  11. CLONAZEPAM [Concomitant]
  12. PRAVASTATIN SODIUM [Concomitant]
  13. ALLOPURINOL [Concomitant]

REACTIONS (4)
  - BLOOD CREATINE PHOSPHOKINASE INCREASED [None]
  - BLOOD POTASSIUM INCREASED [None]
  - BLOOD UREA INCREASED [None]
  - BLOOD URIC ACID INCREASED [None]
